FAERS Safety Report 5159812-1 (Version None)
Quarter: 2006Q4

REPORT INFORMATION
  Report Type: 
  Country: None (occurrence: None)
  Receive Date: 20061129
  Receipt Date: 20060112
  Transmission Date: 20070319
  Serious: No
  Sender: FDA-Public Use
  Company Number: US-GLAXOSMITHKLINE-A0589050A

PATIENT
  Age: 51 Year
  Sex: Male

DRUGS (5)
  1. BUPROPION HCL [Suspect]
     Indication: DEPRESSION
     Dosage: 100MG TWICE PER DAY
     Route: 048
     Dates: start: 20051020
  2. ZOLOFT [Concomitant]
  3. LOVASTATIN [Concomitant]
  4. ALAVERT [Concomitant]
     Route: 065
  5. LOTREL [Concomitant]
     Route: 065

REACTIONS (2)
  - LOCALISED INFECTION [None]
  - RASH [None]
